FAERS Safety Report 6882366-6 (Version None)
Quarter: 2010Q3

REPORT INFORMATION
  Report Type: 
  Country: None (occurrence: None)
  Receive Date: 20100729
  Receipt Date: 20100721
  Transmission Date: 20110219
  Serious: Yes (Hospitalization)
  Sender: FDA-Public Use
  Company Number: DE-BRISTOL-MYERS SQUIBB COMPANY-15175789

PATIENT
  Age: 49 Year
  Sex: Male

DRUGS (9)
  1. ABILIFY [Suspect]
     Indication: PSYCHIATRIC SYMPTOM
     Dates: start: 20100525, end: 20100610
  2. ABILIFY [Suspect]
     Indication: APATHY
     Dates: start: 20100525, end: 20100610
  3. ELONTRIL [Suspect]
     Indication: PSYCHIATRIC SYMPTOM
     Dosage: DOSE INCREASED TO 300MG/D SINCE 08MAR2010
     Dates: start: 20100216, end: 20100610
  4. ELONTRIL [Suspect]
     Indication: APATHY
     Dosage: DOSE INCREASED TO 300MG/D SINCE 08MAR2010
     Dates: start: 20100216, end: 20100610
  5. PIRENZEPINE [Concomitant]
     Indication: SALIVARY HYPERSECRETION
  6. PENICILLAMINE [Concomitant]
     Indication: HEPATO-LENTICULAR DEGENERATION
     Dosage: D-PENICILLAMINE
  7. BACLOFEN [Concomitant]
     Dosage: 1-1/2-1
  8. TRIMIPRAMINE [Concomitant]
     Dosage: (0-0-1)
  9. VITAMIN B6 [Concomitant]
     Dosage: (1-0-0)

REACTIONS (3)
  - ANXIETY [None]
  - DELUSION [None]
  - RESTLESSNESS [None]
